FAERS Safety Report 9241040 (Version 4)
Quarter: 2013Q3

REPORT INFORMATION
  Report Type: Spontaneous
  Country: IL (occurrence: IL)
  Receive Date: 20130419
  Receipt Date: 20130805
  Transmission Date: 20140515
  Serious: Yes (Death, Hospitalization, Other)
  Sender: FDA-Public Use
  Company Number: IL-BIOGENIDEC-2013BI033474

PATIENT
  Age: 70 Year
  Sex: Female

DRUGS (7)
  1. AVONEX [Suspect]
     Indication: MULTIPLE SCLEROSIS
     Route: 030
     Dates: start: 1997
  2. AMLODIPINE MALEATE [Concomitant]
  3. RAMIPRIL [Concomitant]
  4. EUTHYROX [Concomitant]
  5. LYRICA [Concomitant]
     Indication: TRIGEMINAL NEURALGIA
  6. TEGRETOL CR [Concomitant]
  7. STILNOX [Concomitant]

REACTIONS (16)
  - Multi-organ failure [Fatal]
  - Thrombosis mesenteric vessel [Unknown]
  - Gastrointestinal necrosis [Unknown]
  - Communication disorder [Unknown]
  - Mechanical ventilation [Unknown]
  - Coma [Unknown]
  - Pneumonia [Unknown]
  - Abdominal abscess [Unknown]
  - Abdominal pain [Unknown]
  - Vomiting [Unknown]
  - Frequent bowel movements [Unknown]
  - Constipation [Unknown]
  - Asthenia [Unknown]
  - Fatigue [Unknown]
  - Painful respiration [Unknown]
  - Trigeminal neuralgia [Unknown]
